FAERS Safety Report 6583952-3 (Version None)
Quarter: 2010Q1

REPORT INFORMATION
  Report Type: 
  Country: None (occurrence: None)
  Receive Date: 20100216
  Receipt Date: 20091204
  Transmission Date: 20100710
  Serious: No
  Sender: FDA-Public Use
  Company Number: US-ABBOTT-09P-163-0612556-00

PATIENT
  Sex: Female

DRUGS (1)
  1. SIMCOR [Suspect]
     Indication: DRUG USE FOR UNKNOWN INDICATION
     Dosage: 1000/20MG
     Route: 048
     Dates: start: 20091126, end: 20091128

REACTIONS (4)
  - ERYTHEMA [None]
  - FEELING HOT [None]
  - FLUSHING [None]
  - PRURITUS [None]
